FAERS Safety Report 25231075 (Version 1)
Quarter: 2025Q2

REPORT INFORMATION
  Report Type: Spontaneous
  Country: US (occurrence: None)
  Receive Date: 20250423
  Receipt Date: 20250423
  Transmission Date: 20250716
  Serious: Yes (Other)
  Sender: FDA-CTU
  Company Number: None

PATIENT
  Age: 42 Year
  Sex: Female
  Weight: 67.5 kg

DRUGS (3)
  1. REVEALER SKIN-IMPROVING FOUNDATION [Suspect]
     Active Substance: ZINC OXIDE
     Indication: Therapeutic skin care topical
     Dates: start: 20250418, end: 20250418
  2. TYROSINT [Concomitant]
  3. VITAMIN D NOS [Concomitant]
     Active Substance: CHOLECALCIFEROL\ERGOCALCIFEROL

REACTIONS (2)
  - Urticaria [None]
  - Angioedema [None]

NARRATIVE: CASE EVENT DATE: 20250418
